FAERS Safety Report 25569378 (Version 3)
Quarter: 2025Q3

REPORT INFORMATION
  Report Type: Spontaneous
  Country: EU (occurrence: EU)
  Receive Date: 20250716
  Receipt Date: 20250903
  Transmission Date: 20251020
  Serious: Yes (Hospitalization)
  Sender: PIERRE FABRE MEDICAMENT
  Company Number: EU-PFM-2025-03393

PATIENT
  Age: 3 Month
  Sex: Male
  Weight: 8 kg

DRUGS (1)
  1. PROPRANOLOL HYDROCHLORIDE [Suspect]
     Active Substance: PROPRANOLOL HYDROCHLORIDE
     Indication: Haemangioma
     Route: 065

REACTIONS (3)
  - Rash erythematous [Recovered/Resolved]
  - Hypokinesia [Recovering/Resolving]
  - Heart rate decreased [Recovered/Resolved]
